FAERS Safety Report 4781859-5 (Version None)
Quarter: 2005Q3

REPORT INFORMATION
  Report Type: 
  Country: None (occurrence: None)
  Receive Date: 20050927
  Receipt Date: 20050909
  Transmission Date: 20060218
  Serious: No
  Sender: FDA-Public Use
  Company Number: USA0509107606

PATIENT
  Age: 14 Year
  Sex: Female

DRUGS (1)
  1. STRATTERA [Suspect]
     Indication: ATTENTION DEFICIT/HYPERACTIVITY DISORDER
     Dosage: 80 MG DAY
     Dates: start: 20050801, end: 20050908

REACTIONS (5)
  - CHEST DISCOMFORT [None]
  - JAUNDICE [None]
  - OEDEMA MOUTH [None]
  - SWELLING FACE [None]
  - WHITE BLOOD CELL COUNT INCREASED [None]
